APPROVED DRUG PRODUCT: HYDROCORTISONE
Active Ingredient: HYDROCORTISONE
Strength: 1%
Dosage Form/Route: CREAM;TOPICAL
Application: A087795 | Product #001 | TE Code: AT
Applicant: ACTAVIS MID ATLANTIC LLC
Approved: May 3, 1983 | RLD: No | RS: No | Type: RX